FAERS Safety Report 18901450 (Version 1)
Quarter: 2021Q1

REPORT INFORMATION
  Report Type: Spontaneous
  Country: US (occurrence: US)
  Receive Date: 20210217
  Receipt Date: 20210217
  Transmission Date: 20210420
  Serious: Yes (Hospitalization)
  Sender: FDA-Public Use
  Company Number: US-ABBVIE-21K-163-3726228-00

PATIENT
  Sex: Female
  Weight: 68.1 kg

DRUGS (10)
  1. CREON [Suspect]
     Active Substance: PANCRELIPASE AMYLASE\PANCRELIPASE LIPASE\PANCRELIPASE PROTEASE
     Indication: PANCREATITIS
     Dosage: 4 CAPSULES ON DINNER AND 2 PER SNACKS
     Route: 048
     Dates: start: 2017, end: 202012
  2. FOLIC ACID. [Concomitant]
     Active Substance: FOLIC ACID
     Indication: SUPPLEMENTATION THERAPY
  3. FOLIC ACID. [Concomitant]
     Active Substance: FOLIC ACID
     Indication: SUPPLEMENTATION THERAPY
  4. VITAMIN B1 [Concomitant]
     Active Substance: THIAMINE HYDROCHLORIDE
     Indication: SUPPLEMENTATION THERAPY
  5. COLACE [Concomitant]
     Active Substance: DOCUSATE SODIUM
     Indication: CONSTIPATION PROPHYLAXIS
  6. MAGNESIUM CITRATE. [Concomitant]
     Active Substance: MAGNESIUM CITRATE
     Indication: CONSTIPATION PROPHYLAXIS
  7. CREON [Suspect]
     Active Substance: PANCRELIPASE AMYLASE\PANCRELIPASE LIPASE\PANCRELIPASE PROTEASE
     Dosage: 48000 UNITS WITH MEALS AND 24000 UNITS WITH SNACK
     Route: 048
     Dates: start: 20210101
  8. SOFTGEL 5000 [Concomitant]
     Indication: SUPPLEMENTATION THERAPY
  9. TYLENOL [Concomitant]
     Active Substance: ACETAMINOPHEN
     Indication: PAIN
  10. OXYCODONE [Concomitant]
     Active Substance: OXYCODONE
     Indication: PAIN

REACTIONS (14)
  - Aortic aneurysm [Not Recovered/Not Resolved]
  - Portal vein thrombosis [Recovered/Resolved]
  - Splenic injury [Recovered/Resolved]
  - Pancreatitis [Not Recovered/Not Resolved]
  - Flatulence [Recovered/Resolved]
  - Flatulence [Recovered/Resolved]
  - Pancreatic pseudocyst [Recovered/Resolved]
  - Eye haemorrhage [Recovered/Resolved]
  - Drug ineffective [Not Recovered/Not Resolved]
  - Pancreatitis [Not Recovered/Not Resolved]
  - Constipation [Recovered/Resolved]
  - Blood test abnormal [Unknown]
  - Diarrhoea [Recovered/Resolved]
  - Infrequent bowel movements [Recovered/Resolved]

NARRATIVE: CASE EVENT DATE: 2017
